FAERS Safety Report 6983897-0 (Version None)
Quarter: 2010Q3

REPORT INFORMATION
  Report Type: 
  Country: None (occurrence: None)
  Receive Date: 20100914
  Receipt Date: 20090610
  Transmission Date: 20110219
  Serious: Yes (Other)
  Sender: FDA-Public Use
  Company Number: US-WYE-H08963109

PATIENT
  Sex: Female
  Weight: 66.74 kg

DRUGS (3)
  1. PRISTIQ [Suspect]
     Indication: DEPRESSION
     Route: 048
     Dates: start: 20081201, end: 20090301
  2. PRISTIQ [Suspect]
     Route: 048
     Dates: start: 20090301
  3. AVALIDE [Concomitant]
     Indication: HYPERTENSION
     Dosage: UNKNOWN

REACTIONS (8)
  - CONDITION AGGRAVATED [None]
  - DIZZINESS [None]
  - DRUG INEFFECTIVE [None]
  - FATIGUE [None]
  - HALLUCINATION, VISUAL [None]
  - HYPERTENSION [None]
  - INSOMNIA [None]
  - NAUSEA [None]
